FAERS Safety Report 21280931 (Version 1)
Quarter: 2022Q3

REPORT INFORMATION
  Report Type: Spontaneous
  Country: US (occurrence: US)
  Receive Date: 20220901
  Receipt Date: 20220901
  Transmission Date: 20221027
  Serious: No
  Sender: FDA-Public Use
  Company Number: US-PFIZER INC-202201109576

PATIENT
  Age: 52 Year
  Sex: Female
  Weight: 102.95 kg

DRUGS (1)
  1. GABAPENTIN [Suspect]
     Active Substance: GABAPENTIN
     Indication: Fibromyalgia
     Dosage: UNK

REACTIONS (2)
  - Fatigue [Unknown]
  - Off label use [Unknown]
